FAERS Safety Report 11495636 (Version 1)
Quarter: 2015Q3

REPORT INFORMATION
  Report Type: Spontaneous
  Country: US (occurrence: US)
  Receive Date: 20150911
  Receipt Date: 20150911
  Transmission Date: 20151125
  Serious: Yes (Other)
  Sender: FDA-Public Use
  Company Number: US-ABBVIE-15P-163-1457883-00

PATIENT
  Sex: Female

DRUGS (3)
  1. THYROLAR [Suspect]
     Active Substance: LEVOTHYROXINE SODIUM\LIOTHYRONINE SODIUM
     Route: 065
  2. SYNTHROID [Suspect]
     Active Substance: LEVOTHYROXINE SODIUM
     Indication: HYPOTHYROIDISM
     Route: 065
  3. THYROLAR [Suspect]
     Active Substance: LEVOTHYROXINE SODIUM\LIOTHYRONINE SODIUM
     Indication: HYPOTHYROIDISM
     Route: 065

REACTIONS (6)
  - Menorrhagia [Recovering/Resolving]
  - Menstrual disorder [Recovering/Resolving]
  - Stress [Unknown]
  - Weight increased [Recovering/Resolving]
  - Ovarian cyst [Unknown]
  - Alopecia [Recovering/Resolving]
